FAERS Safety Report 21414735 (Version 3)
Quarter: 2022Q4

REPORT INFORMATION
  Report Type: Spontaneous
  Country: CA (occurrence: CA)
  Receive Date: 20221006
  Receipt Date: 20221110
  Transmission Date: 20230113
  Serious: Yes (Other)
  Sender: FDA-Public Use
  Company Number: CA-002147023-NVSC2022CA214707

PATIENT
  Age: 76 Year
  Sex: Female

DRUGS (179)
  1. OMALIZUMAB [Suspect]
     Active Substance: OMALIZUMAB
     Indication: Product used for unknown indication
     Route: 065
  2. OMALIZUMAB [Suspect]
     Active Substance: OMALIZUMAB
     Route: 065
  3. OMALIZUMAB [Suspect]
     Active Substance: OMALIZUMAB
     Route: 065
  4. OMALIZUMAB [Suspect]
     Active Substance: OMALIZUMAB
     Route: 065
  5. OMALIZUMAB [Suspect]
     Active Substance: OMALIZUMAB
     Route: 065
  6. OMALIZUMAB [Suspect]
     Active Substance: OMALIZUMAB
     Route: 065
  7. OMALIZUMAB [Suspect]
     Active Substance: OMALIZUMAB
     Route: 065
  8. OMALIZUMAB [Suspect]
     Active Substance: OMALIZUMAB
     Route: 065
  9. BUDESONIDE [Suspect]
     Active Substance: BUDESONIDE
     Indication: Product used for unknown indication
     Route: 065
  10. BUDESONIDE [Suspect]
     Active Substance: BUDESONIDE
     Route: 065
  11. BUDESONIDE [Suspect]
     Active Substance: BUDESONIDE
     Route: 065
  12. BUDESONIDE [Suspect]
     Active Substance: BUDESONIDE
     Route: 065
  13. BUDESONIDE [Suspect]
     Active Substance: BUDESONIDE
     Route: 065
  14. BUDESONIDE [Suspect]
     Active Substance: BUDESONIDE
     Route: 065
  15. BUDESONIDE [Suspect]
     Active Substance: BUDESONIDE
     Route: 065
  16. BUDESONIDE [Suspect]
     Active Substance: BUDESONIDE
     Route: 065
  17. BUDESONIDE [Suspect]
     Active Substance: BUDESONIDE
     Route: 065
  18. FORMOTEROL FUMARATE [Suspect]
     Active Substance: FORMOTEROL FUMARATE
     Indication: Product used for unknown indication
     Route: 065
  19. FORMOTEROL FUMARATE [Suspect]
     Active Substance: FORMOTEROL FUMARATE
     Route: 065
  20. FORMOTEROL FUMARATE [Suspect]
     Active Substance: FORMOTEROL FUMARATE
     Route: 065
  21. FORMOTEROL FUMARATE [Suspect]
     Active Substance: FORMOTEROL FUMARATE
     Route: 065
  22. FORMOTEROL FUMARATE [Suspect]
     Active Substance: FORMOTEROL FUMARATE
     Route: 065
  23. FORMOTEROL FUMARATE [Suspect]
     Active Substance: FORMOTEROL FUMARATE
     Route: 065
  24. CANAGLIFLOZIN [Suspect]
     Active Substance: CANAGLIFLOZIN
     Indication: Type 2 diabetes mellitus
     Route: 065
  25. CANAGLIFLOZIN [Suspect]
     Active Substance: CANAGLIFLOZIN
     Indication: Product used for unknown indication
     Route: 065
  26. CANAGLIFLOZIN [Suspect]
     Active Substance: CANAGLIFLOZIN
     Route: 065
  27. CANAGLIFLOZIN [Suspect]
     Active Substance: CANAGLIFLOZIN
     Route: 065
  28. CANAGLIFLOZIN [Suspect]
     Active Substance: CANAGLIFLOZIN
     Route: 065
  29. CANAGLIFLOZIN [Suspect]
     Active Substance: CANAGLIFLOZIN
     Route: 065
  30. CANAGLIFLOZIN [Suspect]
     Active Substance: CANAGLIFLOZIN
     Route: 065
  31. CANAGLIFLOZIN [Suspect]
     Active Substance: CANAGLIFLOZIN
     Route: 065
  32. CANAGLIFLOZIN [Suspect]
     Active Substance: CANAGLIFLOZIN
     Route: 065
  33. CANAGLIFLOZIN [Suspect]
     Active Substance: CANAGLIFLOZIN
     Route: 065
  34. CANAGLIFLOZIN [Suspect]
     Active Substance: CANAGLIFLOZIN
     Route: 065
  35. DILTIAZEM [Suspect]
     Active Substance: DILTIAZEM
     Indication: Product used for unknown indication
     Route: 065
  36. DILTIAZEM [Suspect]
     Active Substance: DILTIAZEM
     Route: 065
  37. DILTIAZEM HYDROCHLORIDE [Suspect]
     Active Substance: DILTIAZEM HYDROCHLORIDE
     Indication: Product used for unknown indication
     Route: 065
  38. DILTIAZEM HYDROCHLORIDE [Suspect]
     Active Substance: DILTIAZEM HYDROCHLORIDE
     Route: 065
  39. DILTIAZEM HYDROCHLORIDE [Suspect]
     Active Substance: DILTIAZEM HYDROCHLORIDE
     Route: 065
  40. DILTIAZEM HYDROCHLORIDE [Suspect]
     Active Substance: DILTIAZEM HYDROCHLORIDE
     Route: 065
  41. DILTIAZEM HYDROCHLORIDE [Suspect]
     Active Substance: DILTIAZEM HYDROCHLORIDE
     Route: 065
  42. DILTIAZEM HYDROCHLORIDE [Suspect]
     Active Substance: DILTIAZEM HYDROCHLORIDE
     Route: 065
  43. FORMOTEROL [Suspect]
     Active Substance: FORMOTEROL
     Indication: Product used for unknown indication
     Route: 065
  44. FORMOTEROL [Suspect]
     Active Substance: FORMOTEROL
     Route: 065
  45. FORMOTEROL [Suspect]
     Active Substance: FORMOTEROL
     Route: 065
  46. FERROUS SULFATE [Suspect]
     Active Substance: FERROUS SULFATE
     Indication: Product used for unknown indication
     Route: 065
  47. FERROUS SULFATE [Suspect]
     Active Substance: FERROUS SULFATE
     Route: 065
  48. FERROUS SULFATE [Suspect]
     Active Substance: FERROUS SULFATE
     Route: 065
  49. FERROUS SULFATE [Suspect]
     Active Substance: FERROUS SULFATE
     Route: 065
  50. FERROUS SULFATE [Suspect]
     Active Substance: FERROUS SULFATE
     Route: 065
  51. FERROUS SULFATE [Suspect]
     Active Substance: FERROUS SULFATE
     Route: 065
  52. FERROUS SULFATE [Suspect]
     Active Substance: FERROUS SULFATE
     Route: 065
  53. LANSOPRAZOLE [Suspect]
     Active Substance: LANSOPRAZOLE
     Indication: Product used for unknown indication
     Route: 065
  54. LANSOPRAZOLE [Suspect]
     Active Substance: LANSOPRAZOLE
     Route: 065
  55. LANSOPRAZOLE [Suspect]
     Active Substance: LANSOPRAZOLE
     Route: 065
  56. LANSOPRAZOLE [Suspect]
     Active Substance: LANSOPRAZOLE
     Route: 065
  57. LANSOPRAZOLE [Suspect]
     Active Substance: LANSOPRAZOLE
     Route: 065
  58. LANSOPRAZOLE [Suspect]
     Active Substance: LANSOPRAZOLE
     Route: 065
  59. LANSOPRAZOLE [Suspect]
     Active Substance: LANSOPRAZOLE
     Route: 065
  60. LANSOPRAZOLE [Suspect]
     Active Substance: LANSOPRAZOLE
     Route: 065
  61. LANSOPRAZOLE [Suspect]
     Active Substance: LANSOPRAZOLE
     Route: 065
  62. LANSOPRAZOLE [Suspect]
     Active Substance: LANSOPRAZOLE
     Route: 065
  63. LANSOPRAZOLE [Suspect]
     Active Substance: LANSOPRAZOLE
     Route: 065
  64. LANSOPRAZOLE [Suspect]
     Active Substance: LANSOPRAZOLE
     Route: 065
  65. LANSOPRAZOLE [Suspect]
     Active Substance: LANSOPRAZOLE
     Route: 065
  66. LANSOPRAZOLE [Suspect]
     Active Substance: LANSOPRAZOLE
     Route: 065
  67. LANSOPRAZOLE [Suspect]
     Active Substance: LANSOPRAZOLE
     Route: 065
  68. LEVOTHYROXINE SODIUM [Suspect]
     Active Substance: LEVOTHYROXINE SODIUM
     Indication: Product used for unknown indication
     Route: 065
  69. LEVOTHYROXINE SODIUM [Suspect]
     Active Substance: LEVOTHYROXINE SODIUM
     Route: 065
  70. LEVOTHYROXINE SODIUM [Suspect]
     Active Substance: LEVOTHYROXINE SODIUM
     Route: 065
  71. LEVOTHYROXINE SODIUM [Suspect]
     Active Substance: LEVOTHYROXINE SODIUM
     Route: 065
  72. LEVOTHYROXINE SODIUM [Suspect]
     Active Substance: LEVOTHYROXINE SODIUM
     Route: 065
  73. LEVOTHYROXINE SODIUM [Suspect]
     Active Substance: LEVOTHYROXINE SODIUM
     Route: 065
  74. LEVOTHYROXINE SODIUM [Suspect]
     Active Substance: LEVOTHYROXINE SODIUM
     Route: 065
  75. LEVOTHYROXINE SODIUM [Suspect]
     Active Substance: LEVOTHYROXINE SODIUM
     Route: 065
  76. LEVOTHYROXINE SODIUM [Suspect]
     Active Substance: LEVOTHYROXINE SODIUM
     Route: 065
  77. LEVOTHYROXINE SODIUM [Suspect]
     Active Substance: LEVOTHYROXINE SODIUM
     Route: 065
  78. LEVOTHYROXINE SODIUM [Suspect]
     Active Substance: LEVOTHYROXINE SODIUM
     Route: 065
  79. LEVOTHYROXINE SODIUM [Suspect]
     Active Substance: LEVOTHYROXINE SODIUM
     Route: 065
  80. LEVOTHYROXINE SODIUM [Suspect]
     Active Substance: LEVOTHYROXINE SODIUM
     Route: 065
  81. LEVOTHYROXINE SODIUM [Suspect]
     Active Substance: LEVOTHYROXINE SODIUM
     Route: 065
  82. METFORMIN [Suspect]
     Active Substance: METFORMIN HYDROCHLORIDE
     Indication: Product used for unknown indication
     Route: 065
  83. METFORMIN [Suspect]
     Active Substance: METFORMIN HYDROCHLORIDE
     Route: 065
  84. METFORMIN [Suspect]
     Active Substance: METFORMIN HYDROCHLORIDE
     Route: 065
  85. METFORMIN [Suspect]
     Active Substance: METFORMIN HYDROCHLORIDE
     Route: 065
  86. METFORMIN [Suspect]
     Active Substance: METFORMIN HYDROCHLORIDE
     Route: 065
  87. METFORMIN HYDROCHLORIDE [Suspect]
     Active Substance: METFORMIN HYDROCHLORIDE
     Indication: Product used for unknown indication
     Route: 065
  88. METFORMIN HYDROCHLORIDE [Suspect]
     Active Substance: METFORMIN HYDROCHLORIDE
     Route: 065
  89. METFORMIN HYDROCHLORIDE [Suspect]
     Active Substance: METFORMIN HYDROCHLORIDE
     Route: 065
  90. METFORMIN HYDROCHLORIDE [Suspect]
     Active Substance: METFORMIN HYDROCHLORIDE
     Route: 065
  91. METFORMIN HYDROCHLORIDE [Suspect]
     Active Substance: METFORMIN HYDROCHLORIDE
     Route: 065
  92. METFORMIN HYDROCHLORIDE [Suspect]
     Active Substance: METFORMIN HYDROCHLORIDE
     Route: 065
  93. MOMETASONE [Suspect]
     Active Substance: MOMETASONE
     Indication: Product used for unknown indication
     Route: 065
  94. MOMETASONE [Suspect]
     Active Substance: MOMETASONE
     Route: 065
  95. MOMETASONE [Suspect]
     Active Substance: MOMETASONE
     Route: 065
  96. MOMETASONE [Suspect]
     Active Substance: MOMETASONE
     Route: 065
  97. MOMETASONE [Suspect]
     Active Substance: MOMETASONE
     Route: 065
  98. MOMETASONE FUROATE [Suspect]
     Active Substance: MOMETASONE FUROATE
     Indication: Product used for unknown indication
     Route: 065
  99. MOMETASONE FUROATE [Suspect]
     Active Substance: MOMETASONE FUROATE
     Route: 065
  100. MOMETASONE FUROATE [Suspect]
     Active Substance: MOMETASONE FUROATE
     Route: 065
  101. MOMETASONE FUROATE [Suspect]
     Active Substance: MOMETASONE FUROATE
     Route: 065
  102. MOMETASONE FUROATE [Suspect]
     Active Substance: MOMETASONE FUROATE
     Route: 065
  103. MOMETASONE FUROATE [Suspect]
     Active Substance: MOMETASONE FUROATE
     Route: 065
  104. MOMETASONE FUROATE [Suspect]
     Active Substance: MOMETASONE FUROATE
     Route: 065
  105. MOMETASONE FUROATE [Suspect]
     Active Substance: MOMETASONE FUROATE
     Route: 065
  106. MONTELUKAST [Suspect]
     Active Substance: MONTELUKAST SODIUM
     Indication: Product used for unknown indication
     Route: 065
  107. MONTELUKAST [Suspect]
     Active Substance: MONTELUKAST SODIUM
     Route: 065
  108. MONTELUKAST [Suspect]
     Active Substance: MONTELUKAST SODIUM
     Route: 065
  109. MONTELUKAST [Suspect]
     Active Substance: MONTELUKAST SODIUM
     Route: 065
  110. MONTELUKAST [Suspect]
     Active Substance: MONTELUKAST SODIUM
     Route: 065
  111. MONTELUKAST [Suspect]
     Active Substance: MONTELUKAST SODIUM
     Route: 065
  112. MONTELUKAST SODIUM [Suspect]
     Active Substance: MONTELUKAST SODIUM
     Indication: Product used for unknown indication
     Route: 065
  113. MONTELUKAST SODIUM [Suspect]
     Active Substance: MONTELUKAST SODIUM
     Route: 065
  114. MONTELUKAST SODIUM [Suspect]
     Active Substance: MONTELUKAST SODIUM
     Route: 065
  115. MONTELUKAST SODIUM [Suspect]
     Active Substance: MONTELUKAST SODIUM
     Route: 065
  116. RISEDRONATE SODIUM [Suspect]
     Active Substance: RISEDRONATE SODIUM
     Indication: Product used for unknown indication
     Route: 065
  117. RISEDRONATE SODIUM [Suspect]
     Active Substance: RISEDRONATE SODIUM
     Route: 065
  118. RISEDRONATE SODIUM [Suspect]
     Active Substance: RISEDRONATE SODIUM
     Route: 065
  119. RISEDRONATE SODIUM [Suspect]
     Active Substance: RISEDRONATE SODIUM
     Route: 065
  120. RISEDRONATE SODIUM [Suspect]
     Active Substance: RISEDRONATE SODIUM
     Route: 065
  121. RISEDRONATE SODIUM [Suspect]
     Active Substance: RISEDRONATE SODIUM
     Route: 065
  122. RISEDRONATE SODIUM [Suspect]
     Active Substance: RISEDRONATE SODIUM
     Route: 065
  123. RISEDRONATE SODIUM [Suspect]
     Active Substance: RISEDRONATE SODIUM
     Dosage: 5.0 MILLIGRAM
     Route: 065
  124. ROPINIROLE HYDROCHLORIDE [Suspect]
     Active Substance: ROPINIROLE HYDROCHLORIDE
     Indication: Product used for unknown indication
     Route: 065
  125. ROPINIROLE HYDROCHLORIDE [Suspect]
     Active Substance: ROPINIROLE HYDROCHLORIDE
     Route: 065
  126. ROPINIROLE HYDROCHLORIDE [Suspect]
     Active Substance: ROPINIROLE HYDROCHLORIDE
     Route: 065
  127. ROPINIROLE HYDROCHLORIDE [Suspect]
     Active Substance: ROPINIROLE HYDROCHLORIDE
     Route: 065
  128. ROPINIROLE HYDROCHLORIDE [Suspect]
     Active Substance: ROPINIROLE HYDROCHLORIDE
     Route: 065
  129. ROPINIROLE HYDROCHLORIDE [Suspect]
     Active Substance: ROPINIROLE HYDROCHLORIDE
     Route: 065
  130. ROPINIROLE HYDROCHLORIDE [Suspect]
     Active Substance: ROPINIROLE HYDROCHLORIDE
     Route: 065
  131. ROSUVASTATIN CALCIUM [Suspect]
     Active Substance: ROSUVASTATIN CALCIUM
     Indication: Product used for unknown indication
     Route: 065
  132. ROSUVASTATIN CALCIUM [Suspect]
     Active Substance: ROSUVASTATIN CALCIUM
     Route: 065
  133. ROSUVASTATIN CALCIUM [Suspect]
     Active Substance: ROSUVASTATIN CALCIUM
     Route: 065
  134. ROSUVASTATIN CALCIUM [Suspect]
     Active Substance: ROSUVASTATIN CALCIUM
     Route: 065
  135. ROSUVASTATIN CALCIUM [Suspect]
     Active Substance: ROSUVASTATIN CALCIUM
     Route: 065
  136. ROSUVASTATIN CALCIUM [Suspect]
     Active Substance: ROSUVASTATIN CALCIUM
     Route: 065
  137. VENLAFAXINE HYDROCHLORIDE [Suspect]
     Active Substance: VENLAFAXINE HYDROCHLORIDE
     Indication: Product used for unknown indication
     Route: 065
  138. VENLAFAXINE HYDROCHLORIDE [Suspect]
     Active Substance: VENLAFAXINE HYDROCHLORIDE
     Route: 065
  139. VENLAFAXINE HYDROCHLORIDE [Suspect]
     Active Substance: VENLAFAXINE HYDROCHLORIDE
     Route: 065
  140. VENLAFAXINE HYDROCHLORIDE [Suspect]
     Active Substance: VENLAFAXINE HYDROCHLORIDE
     Route: 065
  141. VENLAFAXINE HYDROCHLORIDE [Suspect]
     Active Substance: VENLAFAXINE HYDROCHLORIDE
     Route: 065
  142. VENLAFAXINE HYDROCHLORIDE [Suspect]
     Active Substance: VENLAFAXINE HYDROCHLORIDE
     Route: 065
  143. VENLAFAXINE HYDROCHLORIDE [Suspect]
     Active Substance: VENLAFAXINE HYDROCHLORIDE
     Route: 065
  144. SITAGLIPTIN PHOSPHATE [Suspect]
     Active Substance: SITAGLIPTIN PHOSPHATE
     Indication: Product used for unknown indication
     Route: 065
  145. SITAGLIPTIN PHOSPHATE [Suspect]
     Active Substance: SITAGLIPTIN PHOSPHATE
     Route: 065
  146. SITAGLIPTIN PHOSPHATE [Suspect]
     Active Substance: SITAGLIPTIN PHOSPHATE
     Route: 065
  147. ALBUTEROL [Suspect]
     Active Substance: ALBUTEROL
     Indication: Product used for unknown indication
     Route: 065
  148. ALBUTEROL [Suspect]
     Active Substance: ALBUTEROL
     Indication: Asthma
     Route: 065
  149. ALBUTEROL [Suspect]
     Active Substance: ALBUTEROL
     Route: 065
  150. ALBUTEROL [Suspect]
     Active Substance: ALBUTEROL
     Route: 065
  151. ALBUTEROL [Suspect]
     Active Substance: ALBUTEROL
     Route: 065
  152. ALBUTEROL [Suspect]
     Active Substance: ALBUTEROL
     Route: 065
  153. ALBUTEROL [Suspect]
     Active Substance: ALBUTEROL
     Route: 065
  154. ALBUTEROL [Suspect]
     Active Substance: ALBUTEROL
     Route: 065
  155. ALBUTEROL [Suspect]
     Active Substance: ALBUTEROL
     Route: 065
  156. ALBUTEROL [Suspect]
     Active Substance: ALBUTEROL
     Route: 065
  157. ALBUTEROL [Suspect]
     Active Substance: ALBUTEROL
     Route: 065
  158. ALBUTEROL [Suspect]
     Active Substance: ALBUTEROL
     Route: 065
  159. PREDNISONE [Suspect]
     Active Substance: PREDNISONE
     Indication: Product used for unknown indication
     Route: 065
  160. PREDNISONE [Suspect]
     Active Substance: PREDNISONE
     Route: 065
  161. PREDNISONE [Suspect]
     Active Substance: PREDNISONE
     Route: 065
  162. PREDNISONE [Suspect]
     Active Substance: PREDNISONE
     Route: 065
  163. PREDNISONE [Suspect]
     Active Substance: PREDNISONE
     Route: 065
  164. PREDNISONE [Suspect]
     Active Substance: PREDNISONE
     Route: 065
  165. PREDNISONE [Suspect]
     Active Substance: PREDNISONE
     Route: 065
  166. PULMICORT TURBUHALER [Suspect]
     Active Substance: BUDESONIDE
     Indication: Product used for unknown indication
     Route: 065
  167. PULMICORT TURBUHALER [Suspect]
     Active Substance: BUDESONIDE
     Route: 065
  168. PULMICORT TURBUHALER [Suspect]
     Active Substance: BUDESONIDE
     Route: 065
  169. PULMICORT TURBUHALER [Suspect]
     Active Substance: BUDESONIDE
     Route: 065
  170. SINGULAIR [Suspect]
     Active Substance: MONTELUKAST SODIUM
     Indication: Product used for unknown indication
     Route: 065
  171. SINGULAIR [Suspect]
     Active Substance: MONTELUKAST SODIUM
     Route: 065
  172. SINGULAIR [Suspect]
     Active Substance: MONTELUKAST SODIUM
     Route: 065
  173. SINGULAIR [Suspect]
     Active Substance: MONTELUKAST SODIUM
     Route: 065
  174. SINGULAIR [Suspect]
     Active Substance: MONTELUKAST SODIUM
     Route: 065
  175. SYNTHROID [Suspect]
     Active Substance: LEVOTHYROXINE SODIUM
     Indication: Product used for unknown indication
     Route: 065
  176. INVOKANA [Suspect]
     Active Substance: CANAGLIFLOZIN
     Indication: Product used for unknown indication
     Dosage: UNK
     Route: 065
  177. IRON [Suspect]
     Active Substance: IRON
     Indication: Product used for unknown indication
     Dosage: UNK
     Route: 065
  178. SYMBICORT [Suspect]
     Active Substance: BUDESONIDE\FORMOTEROL FUMARATE DIHYDRATE
     Indication: Product used for unknown indication
     Dosage: UNK
     Route: 065
  179. VENTOLIN [Suspect]
     Active Substance: ALBUTEROL SULFATE
     Indication: Product used for unknown indication
     Route: 065

REACTIONS (5)
  - Asthma [Unknown]
  - Full blood count abnormal [Unknown]
  - Gastrooesophageal reflux disease [Unknown]
  - Hyperglycaemia [Unknown]
  - Type 2 diabetes mellitus [Unknown]
